FAERS Safety Report 6443099-3 (Version None)
Quarter: 2009Q4

REPORT INFORMATION
  Report Type: 
  Country: None (occurrence: None)
  Receive Date: 20091117
  Receipt Date: 20091110
  Transmission Date: 20100525
  Serious: Yes (Other)
  Sender: FDA-Public Use
  Company Number: B0604618A

PATIENT
  Sex: Female

DRUGS (2)
  1. CIGANON CQ1 [Suspect]
     Dosage: 1PAT PER DAY
     Route: 062
     Dates: start: 20090601, end: 20090601
  2. PSYCHOTROPIC DRUGS [Concomitant]

REACTIONS (2)
  - DYSPHAGIA [None]
  - RESPIRATORY DISTRESS [None]
